FAERS Safety Report 6413029-9 (Version None)
Quarter: 2009Q4

REPORT INFORMATION
  Report Type: 
  Country: None (occurrence: None)
  Receive Date: 20091023
  Receipt Date: 20091023
  Transmission Date: 20100525
  Serious: Yes (Other)
  Sender: FDA-Public Use
  Company Number: None

PATIENT
  Age: 1 Day
  Sex: Male
  Weight: 2.51 kg

DRUGS (1)
  1. GENTAMICIN [Suspect]
     Indication: INFECTION PROPHYLAXIS
     Dosage: 1 STRIP TO EACH EYE ONE TIME TOP
     Route: 061
     Dates: start: 20091019, end: 20091019

REACTIONS (1)
  - APPLICATION SITE VESICLES [None]
